FAERS Safety Report 20633508 (Version 1)
Quarter: 2022Q1

REPORT INFORMATION
  Report Type: Other
  Country: GB (occurrence: GB)
  Receive Date: 20220324
  Receipt Date: 20220324
  Transmission Date: 20220423
  Serious: Yes (Other)
  Sender: FDA-Public Use
  Company Number: GB-MHRA-MED-202203211755374970-XII3V

PATIENT
  Sex: Female

DRUGS (1)
  1. MIRABEGRON [Suspect]
     Active Substance: MIRABEGRON
     Indication: Urinary retention
     Dosage: 50 MG, ONCE DAILY (AT NIGHT)
     Route: 065
     Dates: start: 20220314

REACTIONS (1)
  - Confusional state [Unknown]
